FAERS Safety Report 5874808-X (Version None)
Quarter: 2008Q3

REPORT INFORMATION
  Report Type: 
  Country: None (occurrence: None)
  Receive Date: 20080908
  Receipt Date: 20080908
  Transmission Date: 20090109
  Serious: Yes (Death)
  Sender: FDA-Public Use
  Company Number: None

PATIENT
  Sex: Male
  Weight: 58.0604 kg

DRUGS (1)
  1. FENTANYL-100 [Suspect]
     Dosage: NOT PRESCRIBED
     Dates: start: 20080224, end: 20080225

REACTIONS (3)
  - ACCIDENTAL DEATH [None]
  - SELF-MEDICATION [None]
  - THERAPEUTIC AGENT TOXICITY [None]
